FAERS Safety Report 7145004 (Version 6)
Quarter: 2013Q3

REPORT INFORMATION
  Report Type: Report from Study
  Country: JP (occurrence: JP)
  Receive Date: 20091009
  Receipt Date: 20130722
  Transmission Date: 20140515
  Serious: Yes (Death, Other)
  Sender: FDA-Public Use
  Company Number: JP-PFIZER INC-2009276650

PATIENT
  Age: 49 Year
  Sex: Male
  Weight: 89.7 kg

DRUGS (2)
  1. SUTENT [Suspect]
     Indication: RENAL CELL CARCINOMA
     Dosage: 50 MG DAILY, 4 WEEKS ON TREATMENT FOLLOWED BY SCHEDULED OFF-TREATMENT PERIOD
     Route: 048
     Dates: start: 20090606, end: 20090619
  2. SUTENT [Suspect]
     Dosage: 37.5 MG DAILY, 4 WEEKS ON TREATMENT FOLLOWED BY SCHEDULED OFF-TREATMENT PERIOD
     Route: 048
     Dates: start: 20090728, end: 20110324

REACTIONS (8)
  - Pneumonia [Recovered/Resolved]
  - White blood cell count decreased [Recovered/Resolved]
  - Platelet count decreased [Recovered/Resolved]
  - White blood cell count decreased [Recovered/Resolved]
  - Platelet count decreased [Recovering/Resolving]
  - Neutrophil count decreased [Recovered/Resolved]
  - Disease progression [Fatal]
  - Renal cell carcinoma [Fatal]
